FAERS Safety Report 8271990-4 (Version None)
Quarter: 2012Q2

REPORT INFORMATION
  Report Type: 
  Country: None (occurrence: None)
  Receive Date: 20120410
  Receipt Date: 20120403
  Transmission Date: 20120825
  Serious: Yes (Death, Other)
  Sender: FDA-Public Use
  Company Number: JP-PFIZER INC-2012051711

PATIENT
  Age: 82 Year
  Sex: Female

DRUGS (1)
  1. RHEUMATREX [Suspect]
     Indication: RHEUMATOID ARTHRITIS
     Dosage: 4 MG, WEEKLY
     Route: 048
     Dates: start: 20050101, end: 20110608

REACTIONS (5)
  - DIFFUSE LARGE B-CELL LYMPHOMA [None]
  - RASH [None]
  - SEPTIC EMBOLUS [None]
  - URINARY TRACT INFECTION [None]
  - MULTI-ORGAN FAILURE [None]
